FAERS Safety Report 6382720-5 (Version None)
Quarter: 2009Q3

REPORT INFORMATION
  Report Type: 
  Country: None (occurrence: None)
  Receive Date: 20090930
  Receipt Date: 20090921
  Transmission Date: 20100115
  Serious: Yes (Hospitalization)
  Sender: FDA-Public Use
  Company Number: IT-TEVA-209998ISR

PATIENT
  Age: 71 Year
  Sex: Female

DRUGS (3)
  1. SERTRALINE HCL [Suspect]
     Indication: DEPRESSION
     Dates: start: 20070917
  2. AMISULPRIDE [Concomitant]
     Indication: DEPRESSION
  3. DIAZEPAM [Concomitant]
     Indication: DEPRESSION

REACTIONS (1)
  - RHABDOMYOLYSIS [None]
